FAERS Safety Report 11123354 (Version 2)
Quarter: 2015Q2

REPORT INFORMATION
  Report Type: Spontaneous
  Country: FR (occurrence: FR)
  Receive Date: 20150519
  Receipt Date: 20150519
  Transmission Date: 20150821
  Serious: Yes (Other)
  Sender: FDA-Public Use
  Company Number: PHHY2015FR055426

PATIENT
  Age: 21 Year
  Sex: Male

DRUGS (7)
  1. VALPROIC ACID. [Suspect]
     Active Substance: VALPROIC ACID
     Indication: AUTISM SPECTRUM DISORDER
     Route: 065
  2. CLONAZEPAM. [Suspect]
     Active Substance: CLONAZEPAM
     Indication: CATATONIA
     Route: 065
  3. ARIPIPRAZOLE. [Suspect]
     Active Substance: ARIPIPRAZOLE
     Indication: AUTISM SPECTRUM DISORDER
     Route: 065
  4. CARBAMAZEPINE. [Suspect]
     Active Substance: CARBAMAZEPINE
     Indication: PRODUCT USED FOR UNKNOWN INDICATION
     Route: 065
  5. LITHIUM. [Suspect]
     Active Substance: LITHIUM
     Indication: AUTISM SPECTRUM DISORDER
     Dosage: 1500 MG, QD
     Route: 065
  6. MELATONIN [Concomitant]
     Active Substance: MELATONIN
     Indication: BIPOLAR DISORDER
     Route: 065
  7. METHYLPHENIDATE [Suspect]
     Active Substance: METHYLPHENIDATE
     Indication: AUTISM SPECTRUM DISORDER
     Route: 065

REACTIONS (5)
  - Drug ineffective [Unknown]
  - Aggression [Unknown]
  - Drug reaction with eosinophilia and systemic symptoms [Unknown]
  - Insomnia [Unknown]
  - Cell death [Unknown]
